FAERS Safety Report 21039581 (Version 1)
Quarter: 2022Q3

REPORT INFORMATION
  Report Type: Spontaneous
  Country: AT (occurrence: AT)
  Receive Date: 20220704
  Receipt Date: 20220704
  Transmission Date: 20221026
  Serious: Yes (Other)
  Sender: FDA-Public Use
  Company Number: AT-AMGEN-AUTSP2022109798

PATIENT
  Age: 66 Year
  Sex: Female

DRUGS (3)
  1. PROLIA [Suspect]
     Active Substance: DENOSUMAB
     Indication: Osteoporosis
     Dosage: 60 MILLIGRAM, Q6MO
     Route: 065
     Dates: start: 201512
  2. ROMOSOZUMAB [Concomitant]
     Active Substance: ROMOSOZUMAB
  3. ALENDRONATE [Concomitant]
     Active Substance: ALENDRONATE SODIUM

REACTIONS (3)
  - Spinal fracture [Unknown]
  - Humerus fracture [Unknown]
  - Radius fracture [Unknown]

NARRATIVE: CASE EVENT DATE: 20171201
